FAERS Safety Report 16143929 (Version 3)
Quarter: 2019Q2

REPORT INFORMATION
  Report Type: Spontaneous
  Country: US (occurrence: US)
  Receive Date: 20190401
  Receipt Date: 20190621
  Transmission Date: 20190711
  Serious: Yes (Other)
  Sender: FDA-Public Use
  Company Number: US-ELI_LILLY_AND_COMPANY-US201903010943

PATIENT
  Age: 58 Year
  Sex: Female

DRUGS (1)
  1. FORTEO [Suspect]
     Active Substance: TERIPARATIDE
     Indication: OSTEOPOROSIS
     Dosage: UNK UNK, UNKNOWN
     Route: 058
     Dates: start: 20180906

REACTIONS (8)
  - Stress [Unknown]
  - Fracture [Unknown]
  - Ankle fracture [Recovering/Resolving]
  - Gastrooesophageal reflux disease [Unknown]
  - Injection site haemorrhage [Recovered/Resolved]
  - Rib fracture [Recovering/Resolving]
  - Injection site bruising [Recovered/Resolved]
  - Fall [Recovering/Resolving]

NARRATIVE: CASE EVENT DATE: 201902
